FAERS Safety Report 9799406 (Version 85)
Quarter: 2019Q2

REPORT INFORMATION
  Report Type: Report from Study
  Country: CA (occurrence: CA)
  Receive Date: 20140106
  Receipt Date: 20190620
  Transmission Date: 20190711
  Serious: Yes (Hospitalization, Other)
  Sender: FDA-Public Use
  Company Number: PHHY2013CA154653

PATIENT
  Age: 81 Year
  Sex: Female
  Weight: 63.49 kg

DRUGS (15)
  1. FUROSEMIDE. [Suspect]
     Active Substance: FUROSEMIDE
     Indication: CARDIAC FAILURE
     Dosage: 40 MG, QD
     Route: 065
  2. RAMIPRIL. [Suspect]
     Active Substance: RAMIPRIL
     Indication: BLOOD PRESSURE INCREASED
     Dosage: 2.5 MG, QD
     Route: 048
     Dates: start: 20180222
  3. SANDOSTATIN LAR DEPOT [Suspect]
     Active Substance: OCTREOTIDE ACETATE
     Indication: NEUROENDOCRINE TUMOUR
     Dosage: 20 MG, QMO (ONCE A MONTH)
     Route: 030
     Dates: start: 200810
  4. FUROSEMIDE. [Suspect]
     Active Substance: FUROSEMIDE
     Dosage: 40 MG, BID
     Route: 048
  5. VITAMIN B12 [Suspect]
     Active Substance: CYANOCOBALAMIN
     Indication: PRODUCT USED FOR UNKNOWN INDICATION
     Dosage: UNK
     Route: 048
  6. FERROUS GLUCONATE [Concomitant]
     Active Substance: FERROUS GLUCONATE
     Indication: PRODUCT USED FOR UNKNOWN INDICATION
     Dosage: 300 MG, BID
     Route: 048
  7. EZETIMIBE. [Suspect]
     Active Substance: EZETIMIBE
     Indication: PRODUCT USED FOR UNKNOWN INDICATION
     Dosage: 10 MG, QD (DAILY)
     Route: 048
  8. SANDOSTATIN LAR DEPOT [Suspect]
     Active Substance: OCTREOTIDE ACETATE
     Dosage: 30 MG, QMO (EVERY 4 WEEKS)
     Route: 030
  9. METOPROLOL. [Suspect]
     Active Substance: METOPROLOL
     Indication: PRODUCT USED FOR UNKNOWN INDICATION
     Dosage: 25 MG, QD (DAILY)
     Route: 048
  10. SANDOSTATIN LAR DEPOT [Suspect]
     Active Substance: OCTREOTIDE ACETATE
     Dosage: 20 MG, QMO (EVERY 4 WEEKS)
     Route: 030
     Dates: start: 20160127
  11. SANDOSTATIN LAR DEPOT [Suspect]
     Active Substance: OCTREOTIDE ACETATE
     Dosage: 30 MG, QMO (EVERY 4 WEEKS)
     Route: 030
     Dates: start: 20190225
  12. ZOPICLONE [Suspect]
     Active Substance: ZOPICLONE
     Indication: PRODUCT USED FOR UNKNOWN INDICATION
     Dosage: UNK, PRN
     Route: 065
  13. SANDOSTATIN LAR DEPOT [Suspect]
     Active Substance: OCTREOTIDE ACETATE
     Dosage: 30 MG, QMO (EVERY 4 WEEKS)
     Route: 030
     Dates: start: 20190326
  14. METOPROLOL. [Suspect]
     Active Substance: METOPROLOL
     Dosage: 25 MG, BID
     Route: 048
  15. RABEPRAZOLE [Suspect]
     Active Substance: RABEPRAZOLE
     Indication: PRODUCT USED FOR UNKNOWN INDICATION
     Dosage: 20 MG, QD (DAILY)
     Route: 048

REACTIONS (57)
  - Blood sodium decreased [Recovered/Resolved]
  - Cerebrovascular accident [Unknown]
  - Second primary malignancy [Unknown]
  - Heart rate increased [Unknown]
  - Loss of consciousness [Unknown]
  - Malaise [Unknown]
  - Eating disorder [Unknown]
  - Pain [Unknown]
  - Intervertebral disc degeneration [Unknown]
  - Injection site pain [Unknown]
  - Urinary tract infection [Recovered/Resolved]
  - Weight decreased [Unknown]
  - Flatulence [Not Recovered/Not Resolved]
  - Abdominal pain [Unknown]
  - Ear disorder [Unknown]
  - Injection site mass [Recovered/Resolved]
  - Abdominal discomfort [Unknown]
  - Cardiac valve disease [Unknown]
  - Blood pressure systolic increased [Unknown]
  - Contusion [Recovering/Resolving]
  - Arthritis [Unknown]
  - Blood iron decreased [Unknown]
  - Fall [Recovering/Resolving]
  - Blood pressure decreased [Unknown]
  - Eye contusion [Recovering/Resolving]
  - Hypertension [Unknown]
  - Hypoaesthesia [Unknown]
  - Face injury [Unknown]
  - Weight increased [Unknown]
  - Diarrhoea [Not Recovered/Not Resolved]
  - Oedema peripheral [Unknown]
  - Injection site mass [Recovered/Resolved]
  - Pneumonia [Recovered/Resolved]
  - Hip fracture [Unknown]
  - Dizziness [Unknown]
  - Constipation [Unknown]
  - Abdominal distension [Not Recovered/Not Resolved]
  - Cardiac failure [Unknown]
  - Malignant neoplasm progression [Unknown]
  - Burning sensation [Unknown]
  - Bowel movement irregularity [Unknown]
  - Dehydration [Unknown]
  - Decreased appetite [Unknown]
  - Dizziness postural [Recovered/Resolved]
  - Asthenia [Not Recovered/Not Resolved]
  - Skin cancer [Unknown]
  - Rib fracture [Unknown]
  - Renal impairment [Unknown]
  - Candida infection [Not Recovered/Not Resolved]
  - Neck pain [Unknown]
  - Peripheral swelling [Unknown]
  - Regurgitation [Unknown]
  - Back pain [Recovering/Resolving]
  - Sciatica [Unknown]
  - Dysphonia [Unknown]
  - Blood test abnormal [Unknown]
  - Confusional state [Recovered/Resolved]

NARRATIVE: CASE EVENT DATE: 20140305
